FAERS Safety Report 9436307 (Version 2)
Quarter: 2013Q3

REPORT INFORMATION
  Report Type: Spontaneous
  Country: US (occurrence: US)
  Receive Date: 20130802
  Receipt Date: 20130827
  Transmission Date: 20140515
  Serious: Yes (Other)
  Sender: FDA-Public Use
  Company Number: US-BIOGENIDEC-2013BI070269

PATIENT
  Age: 56 Year
  Sex: Female

DRUGS (4)
  1. AVONEX [Suspect]
     Indication: MULTIPLE SCLEROSIS
     Route: 030
     Dates: start: 20090216
  2. VITAMIN D [Concomitant]
  3. SERTRALINE HCL [Concomitant]
  4. VITAMIN C [Concomitant]

REACTIONS (1)
  - Myocardial infarction [Not Recovered/Not Resolved]
